FAERS Safety Report 19227805 (Version 1)
Quarter: 2021Q2

REPORT INFORMATION
  Report Type: Report from Study
  Country: US (occurrence: US)
  Receive Date: 20210507
  Receipt Date: 20210507
  Transmission Date: 20210717
  Serious: No
  Sender: FDA-Public Use
  Company Number: US-ACADIA PHARMACEUTICALS INC.-ACA-2021-PIM-001405

PATIENT
  Sex: Male

DRUGS (4)
  1. NUPLAZID [Suspect]
     Active Substance: PIMAVANSERIN TARTRATE
     Indication: PARKINSON^S DISEASE
     Dosage: 34 MILLIGRAM, QD
     Route: 048
  2. VASCEPA [Concomitant]
     Active Substance: ICOSAPENT ETHYL
  3. AMLODIPINE [Concomitant]
     Active Substance: AMLODIPINE BESYLATE
  4. FINASTERIDE. [Concomitant]
     Active Substance: FINASTERIDE

REACTIONS (1)
  - Peripheral swelling [Unknown]
